FAERS Safety Report 7704996-1 (Version None)
Quarter: 2011Q3

REPORT INFORMATION
  Report Type: 
  Country: None (occurrence: None)
  Receive Date: 20110823
  Receipt Date: 20110808
  Transmission Date: 20111222
  Serious: Yes (Death)
  Sender: FDA-Public Use
  Company Number: DK-WATSON-2011-13327

PATIENT
  Age: 15 Year
  Sex: Female

DRUGS (1)
  1. METHYLPREDNISOLONE ACETATE [Suspect]
     Indication: STATUS ASTHMATICUS
     Dosage: UNK

REACTIONS (3)
  - CARDIAC ARREST [None]
  - BRADYCARDIA [None]
  - BRONCHOSPASM [None]
